FAERS Safety Report 4293566-6 (Version None)
Quarter: 2004Q1

REPORT INFORMATION
  Report Type: 
  Country: None (occurrence: None)
  Receive Date: 20040211
  Receipt Date: 20040211
  Transmission Date: 20041129
  Serious: Yes (Life-Threatening)
  Sender: FDA-Public Use
  Company Number: None

PATIENT
  Age: 81 Year
  Sex: Female
  Weight: 66.6788 kg

DRUGS (2)
  1. TIKOSYN [Suspect]
     Indication: ATRIAL FIBRILLATION
     Dosage: 500 MG PO BID
     Route: 048
     Dates: start: 20030301
  2. HALOPERIDOL [Suspect]
     Indication: AGITATION
     Dosage: 1 MG IV Q4H PRN
     Route: 042
     Dates: start: 20030920, end: 20030922

REACTIONS (5)
  - DYSPNOEA EXERTIONAL [None]
  - LOSS OF CONSCIOUSNESS [None]
  - MITRAL VALVE INCOMPETENCE [None]
  - TORSADE DE POINTES [None]
  - VENTRICULAR TACHYCARDIA [None]
